FAERS Safety Report 14983966 (Version 3)
Quarter: 2018Q3

REPORT INFORMATION
  Report Type: Spontaneous
  Country: DE (occurrence: DE)
  Receive Date: 20180607
  Receipt Date: 20180713
  Transmission Date: 20181010
  Serious: Yes (Death, Life-Threatening)
  Sender: FDA-Public Use
  Company Number: DE-PFIZER INC-2018232603

PATIENT
  Age: 49 Year
  Sex: Male
  Weight: 52 kg

DRUGS (9)
  1. TAVOR (LORAZEPAM) [Suspect]
     Active Substance: LORAZEPAM
     Dosage: UNK
  2. ATROVENT [Concomitant]
     Active Substance: IPRATROPIUM BROMIDE
  3. DIPIPERON [Concomitant]
     Active Substance: PIPAMPERONE
  4. LORAZEPAM. [Suspect]
     Active Substance: LORAZEPAM
     Dosage: UNK
  5. ABILIFY [Suspect]
     Active Substance: ARIPIPRAZOLE
     Dosage: UNK
  6. MORPHINE SULFATE. [Concomitant]
     Active Substance: MORPHINE SULFATE
  7. SALBUTAMOL [Concomitant]
     Active Substance: ALBUTEROL
  8. HALOPERIDOL. [Concomitant]
     Active Substance: HALOPERIDOL
  9. OLANZAPINE. [Suspect]
     Active Substance: OLANZAPINE
     Dosage: UNK
     Dates: start: 201604

REACTIONS (2)
  - Condition aggravated [Fatal]
  - Chronic obstructive pulmonary disease [Fatal]
